FAERS Safety Report 5890994-X (Version None)
Quarter: 2008Q3

REPORT INFORMATION
  Report Type: 
  Country: None (occurrence: None)
  Receive Date: 20080922
  Receipt Date: 20080910
  Transmission Date: 20090109
  Serious: Yes (Hospitalization)
  Sender: FDA-Public Use
  Company Number: B0536558A

PATIENT
  Age: 78 Year
  Sex: Male

DRUGS (6)
  1. AUGMENTIN '125' [Suspect]
     Indication: ANTIBIOTIC THERAPY
     Route: 065
     Dates: start: 20080306, end: 20080327
  2. OFLOCET 200 MG [Suspect]
     Indication: ANTIBIOTIC THERAPY
     Route: 048
     Dates: start: 20080306, end: 20080325
  3. MODOPAR [Concomitant]
     Indication: DRUG USE FOR UNKNOWN INDICATION
     Route: 065
  4. EXELON [Concomitant]
     Indication: DRUG USE FOR UNKNOWN INDICATION
     Dosage: 4.5MG UNKNOWN
     Route: 065
  5. SERESTA 10 [Concomitant]
     Indication: DRUG USE FOR UNKNOWN INDICATION
     Route: 065
  6. JOSIR [Concomitant]
     Indication: DRUG USE FOR UNKNOWN INDICATION
     Route: 065

REACTIONS (6)
  - AGRANULOCYTOSIS [None]
  - CHOLELITHIASIS [None]
  - DRUG HYPERSENSITIVITY [None]
  - NEUTROPENIA [None]
  - THROMBOCYTOPENIA [None]
  - VIRAL INFECTION [None]
